FAERS Safety Report 8120372-4 (Version None)
Quarter: 2012Q1

REPORT INFORMATION
  Report Type: 
  Country: None (occurrence: None)
  Receive Date: 20120207
  Receipt Date: 20120112
  Transmission Date: 20120608
  Serious: Yes (Hospitalization)
  Sender: FDA-Public Use
  Company Number: JP-GLAXOSMITHKLINE-B0775363A

PATIENT
  Sex: Female

DRUGS (1)
  1. LAMICTAL [Suspect]
     Indication: EPILEPSY
     Route: 048
     Dates: start: 20111101, end: 20111124

REACTIONS (13)
  - LYMPHOCYTE PERCENTAGE DECREASED [None]
  - PYREXIA [None]
  - ERYTHEMA MULTIFORME [None]
  - BLISTER [None]
  - PAPULE [None]
  - C-REACTIVE PROTEIN INCREASED [None]
  - WHITE BLOOD CELL COUNT INCREASED [None]
  - NEUTROPHIL PERCENTAGE INCREASED [None]
  - LIP EROSION [None]
  - GENERALISED ERYTHEMA [None]
  - LYMPHADENOPATHY [None]
  - ORAL MUCOSA EROSION [None]
  - STEVENS-JOHNSON SYNDROME [None]
